FAERS Safety Report 17556452 (Version 1)
Quarter: 2020Q1

REPORT INFORMATION
  Report Type: Spontaneous
  Country: CA (occurrence: CA)
  Receive Date: 20200318
  Receipt Date: 20200318
  Transmission Date: 20200409
  Serious: Yes (Death, Hospitalization)
  Sender: FDA-Public Use
  Company Number: CA-CELGENEUS-CAN-20200305470

PATIENT
  Age: 51 Year
  Sex: Male

DRUGS (1)
  1. REVLIMID [Suspect]
     Active Substance: LENALIDOMIDE
     Indication: PLASMA CELL MYELOMA
     Dosage: 5 MILLIGRAM
     Route: 048
     Dates: start: 20191029

REACTIONS (3)
  - Pyrexia [Unknown]
  - Death [Fatal]
  - Internal haemorrhage [Unknown]

NARRATIVE: CASE EVENT DATE: 20200315
